FAERS Safety Report 6131561-2 (Version None)
Quarter: 2009Q1

REPORT INFORMATION
  Report Type: 
  Country: None (occurrence: None)
  Receive Date: 20090325
  Receipt Date: 20081120
  Transmission Date: 20090719
  Serious: Yes (Hospitalization)
  Sender: FDA-Public Use
  Company Number: US-BRISTOL-MYERS SQUIBB COMPANY-14369870

PATIENT
  Age: 94 Year
  Sex: Female

DRUGS (15)
  1. ERBITUX [Suspect]
     Indication: COLORECTAL CANCER METASTATIC
     Dosage: RECEIVED 2 DOSE, STARTED ON 16-SEP-2008
     Route: 042
     Dates: start: 20080923, end: 20080923
  2. COUMADIN [Concomitant]
     Dosage: ALSO TAKEN 1MG/D 21-OCT-2008
     Dates: start: 20081007
  3. FOLIC ACID [Concomitant]
     Dosage: 21-OCT-2008
     Dates: start: 20081007
  4. GLUCOPHAGE XR [Concomitant]
     Dosage: 21-OCT-2008
     Dates: start: 20081007
  5. MULTI-VITAMIN [Concomitant]
     Dosage: 21-OCT-2008
     Dates: start: 20081007
  6. METHOTREXATE SODIUM [Concomitant]
     Dosage: 21-OCT-2008
     Dates: start: 20081007
  7. PROTONIX [Concomitant]
     Dosage: 21-OCT-2008
     Dates: start: 20081007
  8. PHENERGAN [Concomitant]
     Dosage: 21-OCT-2008
     Dates: start: 20081007
  9. TYLENOL [Concomitant]
     Dates: start: 20081007
  10. MEGACE [Concomitant]
     Dosage: 1 DOSAGE FORM = 20 CC
     Dates: start: 20081007
  11. MIRALAX [Concomitant]
     Dates: start: 20081007
  12. XELODA [Concomitant]
  13. LORTAB [Concomitant]
     Dosage: 1/2 TAB
     Dates: start: 20081021
  14. ANZEMET [Concomitant]
     Indication: PREMEDICATION
     Route: 042
  15. BENADRYL [Concomitant]
     Indication: PREMEDICATION
     Route: 042

REACTIONS (3)
  - CHILLS [None]
  - RESPIRATORY ARREST [None]
  - VOMITING [None]
